FAERS Safety Report 9049819 (Version 1)
Quarter: 2013Q1

REPORT INFORMATION
  Report Type: Report from Study
  Country: US (occurrence: US)
  Receive Date: 20130205
  Receipt Date: 20130205
  Transmission Date: 20140127
  Serious: Yes (Hospitalization, Other)
  Sender: FDA-Public Use
  Company Number: US-ACTELION-A-NJ2012-74654

PATIENT
  Age: 5 Year
  Sex: Male

DRUGS (16)
  1. TRACLEER [Suspect]
     Indication: PULMONARY ARTERIAL HYPERTENSION
     Dosage: 31.25 MG, BID
     Route: 048
     Dates: start: 20120511, end: 20121004
  2. TRACLEER [Suspect]
     Dosage: 31.25 MG, OD
     Route: 048
     Dates: start: 20121005, end: 20121210
  3. REMODULIN [Concomitant]
  4. SILDENAFIL [Concomitant]
  5. LEVETIRACETAM [Concomitant]
  6. CETIRIZINE [Concomitant]
  7. OMEPRAZOLE [Concomitant]
  8. FUROSEMIDE [Concomitant]
  9. SPIRONOLACTONE [Concomitant]
  10. POTASSIUM CHLORIDE [Concomitant]
  11. DIAZEPAM [Concomitant]
  12. FLUTICASONE W/SALMETEROL [Concomitant]
  13. ALBUTEROL HFA [Concomitant]
  14. DOCUSATE SODIUM [Concomitant]
  15. CHLOROTHIAZIDE [Concomitant]
  16. MAGNESIUM GLUCONATE [Concomitant]

REACTIONS (6)
  - Liver function test abnormal [Recovered/Resolved]
  - Aspartate aminotransferase increased [Recovered/Resolved]
  - Alanine aminotransferase increased [Recovered/Resolved]
  - Blood alkaline phosphatase increased [Recovered/Resolved]
  - Small intestinal obstruction [Recovered/Resolved]
  - Surgery [Recovered/Resolved]
